FAERS Safety Report 9338887 (Version 1)
Quarter: 2013Q2

REPORT INFORMATION
  Report Type: Spontaneous
  Country: US (occurrence: None)
  Receive Date: 20130606
  Receipt Date: 20130606
  Transmission Date: 20140414
  Serious: Yes (Hospitalization)
  Sender: FDA-Public Use
  Company Number: None

PATIENT
  Age: 64 Year
  Sex: Male
  Weight: 69.4 kg

DRUGS (1)
  1. CEPHALEXIN [Suspect]
     Dates: start: 20130517, end: 20130522

REACTIONS (8)
  - Rash [None]
  - Pruritus [None]
  - Erythema [None]
  - Urticaria [None]
  - Swelling [None]
  - Ulcer [None]
  - Burning sensation [None]
  - Purulent discharge [None]
